FAERS Safety Report 8828918 (Version 2)
Quarter: 2012Q4

REPORT INFORMATION
  Report Type: 
  Country: DE (occurrence: DE)
  Receive Date: 20121008
  Receipt Date: 20121213
  Transmission Date: 20130627
  Serious: Yes (Life-Threatening, Hospitalization)
  Sender: FDA-Public Use
  Company Number: DE-B.I. PHARMACEUTICALS,INC./RIDGEFIELD-2012-DE-02351DE

PATIENT
  Age: 91 Year
  Sex: Male

DRUGS (11)
  1. PRADAXA [Suspect]
     Indication: ATRIAL FIBRILLATION
     Dosage: 220 mg
     Dates: end: 20120930
  2. METOPROLOLTEXAT [Concomitant]
     Dosage: 47.5 mg
  3. PREDNISOLON [Concomitant]
     Dosage: 5 mg
  4. TROPIUMCHLORID [Concomitant]
     Dosage: 30 mg
  5. ALFUZOSIN [Concomitant]
     Dosage: 5 mg
  6. VALSARTAN [Concomitant]
     Dosage: 80 mg
  7. TORASEMID [Concomitant]
     Dosage: 10 mg
  8. SIMVASTATIN [Concomitant]
     Dosage: 20 mg
  9. ALLOPURINOL [Concomitant]
     Dosage: 300 mg
  10. CA D9 [Concomitant]
     Dosage: 1-0-1
  11. DUROGESIC [Concomitant]
     Dosage: strength: 12.5 every three days

REACTIONS (3)
  - Gastrointestinal haemorrhage [Recovered/Resolved]
  - Coagulation test abnormal [Recovered/Resolved]
  - Fall [Unknown]
